FAERS Safety Report 16533676 (Version 1)
Quarter: 2019Q3

REPORT INFORMATION
  Report Type: Report from Study
  Country: US (occurrence: US)
  Receive Date: 20190704
  Receipt Date: 20190704
  Transmission Date: 20191004
  Serious: Yes (Death, Disabling)
  Sender: FDA-Public Use
  Company Number: US-ASTRAZENECA-2018SE03361

PATIENT
  Age: 22603 Day
  Sex: Male
  Weight: 96.5 kg

DRUGS (2)
  1. METOPROLOL TARTRATE. [Suspect]
     Active Substance: METOPROLOL TARTRATE
     Indication: HYPERTENSION
     Route: 048
     Dates: start: 20131031, end: 20181024
  2. ACALABRUTINIB. [Suspect]
     Active Substance: ACALABRUTINIB
     Indication: MANTLE CELL LYMPHOMA
     Route: 048
     Dates: start: 20171219

REACTIONS (5)
  - Increased appetite [Fatal]
  - Back pain [Fatal]
  - Lymphoma [Fatal]
  - Back disorder [Not Recovered/Not Resolved]
  - Cough [Fatal]

NARRATIVE: CASE EVENT DATE: 20141201
